FAERS Safety Report 25631929 (Version 2)
Quarter: 2025Q4

REPORT INFORMATION
  Report Type: Report from Study
  Country: US (occurrence: US)
  Receive Date: 20250801
  Receipt Date: 20251008
  Transmission Date: 20260118
  Serious: Yes (Other)
  Sender: NOVARTIS
  Company Number: US-002147023-NVSC2025US112309

PATIENT
  Sex: Female

DRUGS (1)
  1. KESIMPTA [Suspect]
     Active Substance: OFATUMUMAB
     Indication: Multiple sclerosis
     Dosage: 20 MG
     Route: 058

REACTIONS (11)
  - Multiple sclerosis [Unknown]
  - Device difficult to use [Unknown]
  - Incorrect dose administered [Unknown]
  - Fatigue [Unknown]
  - Hypersensitivity [Unknown]
  - Dysphonia [Unknown]
  - Dizziness [Unknown]
  - Malaise [Unknown]
  - Blood glucose increased [Unknown]
  - Speech disorder [Unknown]
  - Dyspnoea [Unknown]
